FAERS Safety Report 7545387-6 (Version None)
Quarter: 2011Q2

REPORT INFORMATION
  Report Type: 
  Country: None (occurrence: None)
  Receive Date: 20110613
  Receipt Date: 20110613
  Transmission Date: 20111010
  Serious: No
  Sender: FDA-Public Use
  Company Number: None

PATIENT
  Age: 78 Year
  Sex: Male
  Weight: 99.7913 kg

DRUGS (1)
  1. SIMVASTATIN [Suspect]
     Indication: BLOOD CHOLESTEROL
     Dosage: 1 TABLE DAILY

REACTIONS (8)
  - NERVE INJURY [None]
  - DEPRESSION [None]
  - PAIN IN EXTREMITY [None]
  - NODULE [None]
  - IMPAIRED DRIVING ABILITY [None]
  - GAIT DISTURBANCE [None]
  - MYOPATHY [None]
  - BURNING SENSATION [None]
